FAERS Safety Report 12386088 (Version 1)
Quarter: 2016Q2

REPORT INFORMATION
  Report Type: Spontaneous
  Country: US (occurrence: US)
  Receive Date: 20160519
  Receipt Date: 20160519
  Transmission Date: 20160815
  Serious: No
  Sender: FDA-Public Use
  Company Number: US-ELI_LILLY_AND_COMPANY-US201605002578

PATIENT
  Sex: Male
  Weight: 136.5 kg

DRUGS (3)
  1. INSULIN LISPRO [Suspect]
     Active Substance: INSULIN LISPRO
     Indication: TYPE 2 DIABETES MELLITUS
     Route: 065
  2. TRULICITY [Suspect]
     Active Substance: DULAGLUTIDE
     Indication: TYPE 2 DIABETES MELLITUS
     Dosage: 0.75 MG, WEEKLY (1/W)
     Route: 065
     Dates: start: 20160422
  3. NOVOLOG [Suspect]
     Active Substance: INSULIN ASPART
     Indication: TYPE 2 DIABETES MELLITUS
     Route: 065

REACTIONS (3)
  - Fat tissue increased [Unknown]
  - Weight increased [Recovering/Resolving]
  - Weight decreased [Unknown]
